FAERS Safety Report 22802369 (Version 2)
Quarter: 2024Q1

REPORT INFORMATION
  Report Type: Spontaneous
  Country: IT (occurrence: IT)
  Receive Date: 20230809
  Receipt Date: 20240209
  Transmission Date: 20240410
  Serious: Yes (Hospitalization)
  Sender: FDA-Public Use
  Company Number: None

PATIENT
  Age: 28 Year
  Sex: Female

DRUGS (4)
  1. ESCITALOPRAM [Suspect]
     Active Substance: ESCITALOPRAM OXALATE
     Indication: Intentional self-injury
     Dosage: NO KNOWN QUANTITY (NON NOTA QUANTIT?), FORM-UNKNOWN
     Route: 048
     Dates: start: 20230119
  2. ACETAMINOPHEN\CODEINE PHOSPHATE [Suspect]
     Active Substance: ACETAMINOPHEN\CODEINE PHOSPHATE
     Indication: Intentional self-injury
     Route: 048
     Dates: start: 20230119
  3. BROMAZEPAM\PROPANTHELINE BROMIDE [Suspect]
     Active Substance: BROMAZEPAM\PROPANTHELINE BROMIDE
     Indication: Intentional self-injury
     Dosage: 15 CP (90MG)
     Route: 048
  4. QUETIAPINE [Suspect]
     Active Substance: QUETIAPINE
     Indication: Intentional self-injury
     Dosage: QUETIAPINE 250MG (10CP OF 25MG) + 300MG (6CP OF 50MG) (QUETIAPINA 250MG (10CP DA 25MG) + 300MG (6CP
     Route: 048
     Dates: start: 20230119, end: 20230119

REACTIONS (5)
  - Acidosis [Unknown]
  - Substance abuse [Unknown]
  - Hypotension [Unknown]
  - Sopor [Unknown]
  - Product use in unapproved indication [Unknown]

NARRATIVE: CASE EVENT DATE: 20230119
